FAERS Safety Report 25539805 (Version 1)
Quarter: 2025Q3

REPORT INFORMATION
  Report Type: Spontaneous
  Country: US (occurrence: US)
  Receive Date: 20250710
  Receipt Date: 20250710
  Transmission Date: 20251021
  Serious: No
  Sender: GILEAD
  Company Number: US-GILEAD-2025-0719845

PATIENT

DRUGS (1)
  1. LENACAPAVIR [Suspect]
     Active Substance: LENACAPAVIR
     Indication: Product used for unknown indication
     Route: 065

REACTIONS (4)
  - Nodule [Not Recovered/Not Resolved]
  - Swelling [Not Recovered/Not Resolved]
  - Nausea [Not Recovered/Not Resolved]
  - Discomfort [Not Recovered/Not Resolved]
